FAERS Safety Report 7475741-2 (Version None)
Quarter: 2011Q1

REPORT INFORMATION
  Report Type: 
  Country: None (occurrence: None)
  Receive Date: 20110308
  Receipt Date: 20100309
  Transmission Date: 20110831
  Serious: Yes (Other)
  Sender: FDA-Public Use
  Company Number: 2010BH006394

PATIENT
  Age: 18 Year
  Sex: Male

DRUGS (1)
  1. RECOMBINATE [Suspect]
     Indication: HAEMOPHILIA

REACTIONS (1)
  - FACTOR VIII INHIBITION [None]
